FAERS Safety Report 7541021-X (Version None)
Quarter: 2011Q2

REPORT INFORMATION
  Report Type: 
  Country: None (occurrence: None)
  Receive Date: 20110610
  Receipt Date: 20100525
  Transmission Date: 20111010
  Serious: No
  Sender: FDA-Public Use
  Company Number: A0852912A

PATIENT
  Age: 17 Year
  Sex: Female

DRUGS (2)
  1. ANTIBIOTIC [Concomitant]
     Route: 065
     Dates: start: 20100331
  2. ALTABAX [Suspect]
     Indication: IMPETIGO
     Dosage: 1APP SINGLE DOSE
     Route: 061
     Dates: start: 20100331

REACTIONS (4)
  - PAIN [None]
  - HYPERSENSITIVITY [None]
  - ILL-DEFINED DISORDER [None]
  - ERYTHEMA [None]
